FAERS Safety Report 6349345-9 (Version None)
Quarter: 2009Q3

REPORT INFORMATION
  Report Type: 
  Country: None (occurrence: None)
  Receive Date: 20090911
  Receipt Date: 20090904
  Transmission Date: 20100115
  Serious: Yes (Other)
  Sender: FDA-Public Use
  Company Number: MX-ELI_LILLY_AND_COMPANY-MX200909001494

PATIENT
  Age: 58 Year
  Sex: Female

DRUGS (8)
  1. HUMALOG MIX 75/25 [Suspect]
     Dosage: 42 IU, DAILY (1/D)
     Route: 058
     Dates: start: 20080901
  2. ATACAND HCT [Concomitant]
     Indication: BLOOD PRESSURE
     Dosage: 16 MG, UNKNOWN
     Route: 065
  3. DABEX [Concomitant]
     Dosage: 750 MG, DAILY (1/D)
     Route: 065
  4. LOPRESSOR [Concomitant]
     Dosage: UNK, DAILY (1/D)
     Route: 065
  5. CRESTOR [Concomitant]
     Indication: BLOOD CHOLESTEROL
     Dosage: 10 MG, DAILY (1/D)
     Route: 065
  6. ZYMAR [Concomitant]
     Indication: EYE DISORDER
     Dosage: 6 UNK, DAILY (1/D)
     Route: 047
  7. OPTIVE [Concomitant]
     Indication: EYE DISORDER
     Dosage: 4 UNK, DAILY (1/D)
     Route: 047
  8. KEFLEX [Concomitant]
     Indication: EYE DISORDER
     Dosage: 1500 MG, DAILY (1/D)
     Route: 065

REACTIONS (1)
  - EYE DISORDER [None]
